FAERS Safety Report 13661717 (Version 1)
Quarter: 2017Q2

REPORT INFORMATION
  Report Type: Report from Study
  Country: US (occurrence: US)
  Receive Date: 20170616
  Receipt Date: 20170616
  Transmission Date: 20170830
  Serious: Yes (Other)
  Sender: FDA-Public Use
  Company Number: US-TEVA-777752USA

PATIENT
  Age: 31 Year
  Sex: Female

DRUGS (1)
  1. COPAXONE [Suspect]
     Active Substance: GLATIRAMER ACETATE
     Indication: MULTIPLE SCLEROSIS
     Route: 058
     Dates: start: 20170305

REACTIONS (6)
  - Dyspnoea [Unknown]
  - Wheezing [Unknown]
  - Blindness unilateral [Unknown]
  - Pruritus [Unknown]
  - Injection site urticaria [Unknown]
  - Anxiety [Unknown]

NARRATIVE: CASE EVENT DATE: 20170608
